FAERS Safety Report 7103086-9 (Version None)
Quarter: 2010Q4

REPORT INFORMATION
  Report Type: 
  Country: None (occurrence: None)
  Receive Date: 20101115
  Receipt Date: 20101029
  Transmission Date: 20110411
  Serious: Yes (Hospitalization, Other)
  Sender: FDA-Public Use
  Company Number: FR-BAYER-201027125GPV

PATIENT
  Age: 35 Year
  Sex: Female
  Weight: 46 kg

DRUGS (1)
  1. MIRENA [Suspect]
     Indication: CONTRACEPTION
     Route: 015
     Dates: start: 20080923

REACTIONS (9)
  - ABDOMINAL PAIN [None]
  - AMENORRHOEA [None]
  - ECTOPIC PREGNANCY WITH INTRAUTERINE DEVICE [None]
  - MALAISE [None]
  - METRORRHAGIA [None]
  - PELVIC PAIN [None]
  - RUPTURED ECTOPIC PREGNANCY [None]
  - SYNCOPE [None]
  - VAGINAL DISCHARGE [None]
